FAERS Safety Report 5690982-2 (Version None)
Quarter: 2008Q2

REPORT INFORMATION
  Report Type: 
  Country: None (occurrence: None)
  Receive Date: 20080401
  Receipt Date: 20080325
  Transmission Date: 20081010
  Serious: Yes (Hospitalization)
  Sender: FDA-Public Use
  Company Number: US-ELI_LILLY_AND_COMPANY-US200803005892

PATIENT
  Sex: Female
  Weight: 108.84 kg

DRUGS (12)
  1. BYETTA [Suspect]
     Dosage: 5 UG, 2/D
     Route: 058
     Dates: start: 20061201, end: 20070101
  2. BYETTA [Suspect]
     Dosage: 10 UG, 2/D
     Route: 058
     Dates: start: 20070101
  3. ANTI-DIABETICS [Concomitant]
     Dosage: UNK, DAILY (1/D)
     Route: 048
     Dates: start: 20080101
  4. ACTOS [Concomitant]
     Dosage: 45 MG, DAILY (1/D)
     Route: 048
  5. ZOCOR [Concomitant]
     Indication: BLOOD CHOLESTEROL INCREASED
  6. ZYRTEC [Concomitant]
     Indication: HYPERSENSITIVITY
  7. COZAAR [Concomitant]
     Indication: PROPHYLAXIS
  8. NEXIUM [Concomitant]
     Dates: start: 20071101
  9. AXERT [Concomitant]
     Indication: MIGRAINE
     Dates: start: 20080101
  10. ASPIRIN [Concomitant]
     Indication: OSTEOARTHRITIS
     Dosage: 162 MG, DAILY (1/D)
     Route: 048
  11. OSTEO BI-FLEX [Concomitant]
  12. GLUCOPHAGE [Concomitant]
     Route: 048
     Dates: end: 20080101

REACTIONS (6)
  - BLOOD CREATININE INCREASED [None]
  - MIDDLE EAR EFFUSION [None]
  - NAUSEA [None]
  - OSTEOARTHRITIS [None]
  - VOMITING [None]
  - WEIGHT DECREASED [None]
